FAERS Safety Report 18484041 (Version 14)
Quarter: 2023Q1

REPORT INFORMATION
  Report Type: Report from Study
  Country: US (occurrence: None)
  Receive Date: 20201109
  Receipt Date: 20230125
  Transmission Date: 20230418
  Serious: Yes (Hospitalization)
  Sender: FDA-Public Use
  Company Number: US-ROCHE-2702247

PATIENT
  Age: 77 Year
  Sex: Female
  Weight: 66.2 kg

DRUGS (20)
  1. COBIMETINIB [Suspect]
     Active Substance: COBIMETINIB
     Indication: Ovarian cancer recurrent
     Dosage: START DATE OF MOST RECENT DOSE OF STUDY DRUG PRIOR TO AE: 12/OCT/2020?DOSE LAST STUDY DRUG ADMIN PRI
     Route: 048
     Dates: start: 20200925
  2. NIRAPARIB [Suspect]
     Active Substance: NIRAPARIB
     Indication: Ovarian cancer recurrent
     Dosage: START DATE OF MOST RECENT DOSE OF STUDY DRUG PRIOR TO AE: 12/OCT/2020?DOSE LAST STUDY DRUG ADMIN PRI
     Route: 048
     Dates: start: 20200925
  3. ZOFRAN [Concomitant]
     Active Substance: ONDANSETRON HYDROCHLORIDE
     Indication: Nausea
     Dosage: PILL
     Route: 048
     Dates: start: 20200927
  4. MIRALAX [Concomitant]
     Active Substance: POLYETHYLENE GLYCOL 3350
     Indication: Constipation
     Dosage: 1 TO 3 TIMES PER DAY PRN
     Route: 048
     Dates: start: 20201001
  5. SODIUM CHLORIDE [Concomitant]
     Active Substance: SODIUM CHLORIDE
     Indication: Prophylaxis against dehydration
     Dosage: DOSE: 1 OTHER
     Route: 042
     Dates: start: 20201008, end: 20201008
  6. DELSYM [Concomitant]
     Active Substance: DEXTROMETHORPHAN
     Indication: Cough
     Route: 065
     Dates: start: 20201008, end: 20201013
  7. TESSALON [Concomitant]
     Active Substance: BENZONATATE
     Indication: Cough
     Route: 065
     Dates: start: 20201015
  8. CRESTOR [Concomitant]
     Active Substance: ROSUVASTATIN CALCIUM
     Indication: Hyperlipidaemia
     Route: 048
     Dates: start: 201905
  9. LEXAPRO [Concomitant]
     Active Substance: ESCITALOPRAM OXALATE
     Indication: Anxiety
     Route: 048
     Dates: start: 2016
  10. AMOXICILLIN [Concomitant]
     Active Substance: AMOXICILLIN
     Dosage: PRN
     Route: 048
     Dates: start: 20190906
  11. CARBOPLATIN [Concomitant]
     Active Substance: CARBOPLATIN
     Indication: Neoplasm malignant
     Dates: start: 20210330, end: 20210908
  12. GEMCITABINE [Concomitant]
     Active Substance: GEMCITABINE
     Indication: Neoplasm malignant
     Dates: start: 20210330, end: 20210908
  13. RUCAPARIB [Concomitant]
     Active Substance: RUCAPARIB
     Indication: Neoplasm malignant
     Dates: start: 20211005, end: 20220118
  14. MINERALS\VITAMINS [Concomitant]
     Active Substance: MINERALS\VITAMINS
     Route: 048
  15. CHOLECALCIFEROL [Concomitant]
     Active Substance: CHOLECALCIFEROL
     Route: 048
  16. ACETAMINOPHEN [Concomitant]
     Active Substance: ACETAMINOPHEN
     Route: 048
  17. OLAPARIB [Concomitant]
     Active Substance: OLAPARIB
     Indication: Neoplasm malignant
     Dates: start: 20220209, end: 20220411
  18. MVASI [Concomitant]
     Active Substance: BEVACIZUMAB-AWWB
     Indication: Neoplasm malignant
     Dates: start: 20220428
  19. PARAPLATIN [Concomitant]
     Active Substance: CARBOPLATIN
     Indication: Neoplasm malignant
     Dates: start: 20220426
  20. GEMCITABINE [Concomitant]
     Active Substance: GEMCITABINE
     Indication: Neoplasm malignant
     Dates: start: 20220426

REACTIONS (3)
  - Cardiac failure [Not Recovered/Not Resolved]
  - Cardiac ventricular thrombosis [Recovered/Resolved]
  - Ejection fraction decreased [Recovered/Resolved]

NARRATIVE: CASE EVENT DATE: 20201023
